FAERS Safety Report 4541596-9 (Version None)
Quarter: 2004Q4

REPORT INFORMATION
  Report Type: 
  Country: None (occurrence: None)
  Receive Date: 20041227
  Receipt Date: 20041208
  Transmission Date: 20050328
  Serious: Yes (Death)
  Sender: FDA-Public Use
  Company Number: B0359982C

PATIENT
  Sex: Male

DRUGS (3)
  1. ERYTHROMYCIN [Suspect]
     Dosage: 500 MG/THREE TIMES PER DAY TRANS
     Route: 064
  2. INSULIN [Suspect]
     Dosage: TRANSPLACENTARY
     Route: 064
  3. PREDNISOLONE [Concomitant]
     Route: 064

REACTIONS (7)
  - CAESAREAN SECTION [None]
  - DRUG EXPOSURE DURING PREGNANCY [None]
  - FOETAL ARRHYTHMIA [None]
  - FOETAL MOVEMENTS DECREASED [None]
  - GESTATIONAL DIABETES [None]
  - INTRA-UTERINE DEATH [None]
  - OLIGOHYDRAMNIOS [None]
